FAERS Safety Report 12988004 (Version 1)
Quarter: 2016Q4

REPORT INFORMATION
  Report Type: Spontaneous
  Country: TN (occurrence: TN)
  Receive Date: 20161130
  Receipt Date: 20161130
  Transmission Date: 20170207
  Serious: Yes (Hospitalization)
  Sender: FDA-Public Use
  Company Number: TN-SCIEGEN PHARMACEUTICALS INC-2016SCILIT00592

PATIENT
  Age: 59 Year
  Sex: Male

DRUGS (8)
  1. DIAZEPAM. [Concomitant]
     Active Substance: DIAZEPAM
     Indication: SEIZURE
     Dosage: UNK
     Route: 065
  2. LAMOTRIGINE TABLETS [Suspect]
     Active Substance: LAMOTRIGINE
     Indication: SEIZURE
     Dosage: UNK
     Route: 065
  3. PIRACETAM [Concomitant]
     Active Substance: PIRACETAM
     Indication: PRODUCT USED FOR UNKNOWN INDICATION
     Dosage: UNK
     Route: 065
  4. LEVETIRACETAM. [Concomitant]
     Active Substance: LEVETIRACETAM
     Indication: PRODUCT USED FOR UNKNOWN INDICATION
     Dosage: UNK
     Route: 065
  5. SODIUM VALPROATE [Concomitant]
     Active Substance: VALPROATE SODIUM
     Indication: SEIZURE
     Dosage: UNK
     Route: 065
  6. PHENYTOIN. [Concomitant]
     Active Substance: PHENYTOIN
     Indication: PRODUCT USED FOR UNKNOWN INDICATION
     Dosage: UNK
     Route: 065
  7. CARBAMAZEPINE. [Concomitant]
     Active Substance: CARBAMAZEPINE
     Indication: PRODUCT USED FOR UNKNOWN INDICATION
     Dosage: UNK
     Route: 065
  8. IMMUNOGLOBULIN [Concomitant]
     Active Substance: HUMAN IMMUNOGLOBULIN G
     Indication: SEIZURE
     Dosage: 0.4 G/KG DAILY FOR 5 DAYS
     Route: 042

REACTIONS (17)
  - Hyponatraemia [Unknown]
  - Palmomental reflex [Unknown]
  - Neurone-specific enolase increased [Unknown]
  - Drug ineffective [Unknown]
  - Glycosylated haemoglobin increased [Unknown]
  - Inappropriate antidiuretic hormone secretion [Unknown]
  - Anti-VGKC antibody positive [Unknown]
  - Limbic encephalitis [Unknown]
  - Dystonic tremor [Unknown]
  - Disorientation [Recovering/Resolving]
  - Memory impairment [Recovering/Resolving]
  - Hypochloraemia [Unknown]
  - Intraductal papillary-mucinous carcinoma of pancreas [Unknown]
  - Somnolence [Recovering/Resolving]
  - Parkinsonism [Unknown]
  - Hyperglycaemia [Unknown]
  - Confusional state [Recovering/Resolving]
